FAERS Safety Report 19982219 (Version 1)
Quarter: 2021Q4

REPORT INFORMATION
  Report Type: Spontaneous
  Country: KR (occurrence: KR)
  Receive Date: 20211022
  Receipt Date: 20211022
  Transmission Date: 20220303
  Serious: Yes (Other)
  Sender: FDA-Public Use
  Company Number: KR-TELIGENT, INC-20211000089

PATIENT
  Age: 47 Year
  Sex: Female

DRUGS (1)
  1. LIDOCAINE [Suspect]
     Active Substance: LIDOCAINE
     Indication: Arthralgia
     Dosage: 6 MILLILITER INJECTED AROUND THE RIGHT C5 AND C6 NERVE ROOTS
     Route: 030

REACTIONS (1)
  - Nerve root injury cervical [Not Recovered/Not Resolved]
